FAERS Safety Report 13864947 (Version 3)
Quarter: 2020Q4

REPORT INFORMATION
  Report Type: Report from Study
  Country: US (occurrence: US)
  Receive Date: 20170814
  Receipt Date: 20201028
  Transmission Date: 20210113
  Serious: Yes (Death, Hospitalization)
  Sender: FDA-Public Use
  Company Number: US-ROCHE-1956075

PATIENT
  Age: 67 Year
  Sex: Male
  Weight: 91.6 kg

DRUGS (11)
  1. ATEZOLIZUMAB. [Suspect]
     Active Substance: ATEZOLIZUMAB
     Indication: SQUAMOUS CELL CARCINOMA OF LUNG
     Dosage: LAST DOSE (1200 MG) RECEIVED ON 24/MAY/2017
     Route: 042
     Dates: start: 20170321
  2. CARBOPLATIN. [Suspect]
     Active Substance: CARBOPLATIN
     Dosage: 10 MG/ML (FORM STRENGTH), CYCLE 1 DAY 22
     Route: 042
     Dates: start: 20170201
  3. PACLITAXEL. [Suspect]
     Active Substance: PACLITAXEL
     Dosage: 10 MG/ML (FORM STRENGTH), CYCLE 1 DAY 22
     Route: 042
     Dates: start: 20170201
  4. PACLITAXEL. [Suspect]
     Active Substance: PACLITAXEL
     Dosage: 10 MG/ML (FORM STRENGTH)
     Route: 042
     Dates: start: 20170321
  5. ATEZOLIZUMAB. [Suspect]
     Active Substance: ATEZOLIZUMAB
     Dosage: LAST DOSE (1200 MG) RECEIVED ON 24/MAY/2017
     Route: 042
     Dates: start: 20170503
  6. ATEZOLIZUMAB. [Suspect]
     Active Substance: ATEZOLIZUMAB
     Dosage: LAST DOSE (1200 MG) RECEIVED ON 24/MAY/2017
     Route: 042
     Dates: start: 20170524
  7. CARBOPLATIN. [Suspect]
     Active Substance: CARBOPLATIN
     Dosage: 10 MG/ML (FORM STRENGTH), CYCLE 1 DAY 15
     Route: 042
     Dates: start: 20170125
  8. PACLITAXEL. [Suspect]
     Active Substance: PACLITAXEL
     Indication: SQUAMOUS CELL CARCINOMA OF LUNG
     Dosage: 10 MG/ML (FORM STRENGTH), CYCLE 1 DAY 1
     Route: 042
     Dates: start: 20170103
  9. CARBOPLATIN. [Suspect]
     Active Substance: CARBOPLATIN
     Dosage: 10 MG/ML (FORM STRENGTH)
     Route: 042
     Dates: start: 20170321
  10. CARBOPLATIN. [Suspect]
     Active Substance: CARBOPLATIN
     Indication: SQUAMOUS CELL CARCINOMA OF LUNG
     Dosage: 10 MG/ML (FORM STRENGTH), CYCLE 1 DAY 1
     Route: 042
     Dates: start: 20170103
  11. PACLITAXEL. [Suspect]
     Active Substance: PACLITAXEL
     Dosage: 10 MG/ML (FORM STRENGTH), CYCLE 1 DAY 15
     Route: 042
     Dates: start: 20170125

REACTIONS (3)
  - Tracheo-oesophageal fistula [Fatal]
  - Pneumonia [Fatal]
  - Dyspnoea [Unknown]

NARRATIVE: CASE EVENT DATE: 20170610
